FAERS Safety Report 6600443-1 (Version None)
Quarter: 2010Q1

REPORT INFORMATION
  Report Type: 
  Country: None (occurrence: None)
  Receive Date: 20100223
  Receipt Date: 20100223
  Transmission Date: 20100710
  Serious: Yes (Life-Threatening, Hospitalization)
  Sender: FDA-Public Use
  Company Number: None

PATIENT
  Sex: Male
  Weight: 112.5 kg

DRUGS (2)
  1. MALARONE [Suspect]
     Indication: MALARIA PROPHYLAXIS
     Dosage: 250/100 MG DAILY ORAL (047)
     Route: 048
     Dates: start: 20100118, end: 20100120
  2. BACTRIM DS (SULFAMETHOAZOLE /TRIMETHOPRIM ) [Concomitant]

REACTIONS (7)
  - ABASIA [None]
  - ADVERSE DRUG REACTION [None]
  - DERMATITIS [None]
  - MOUTH ULCERATION [None]
  - STEVENS-JOHNSON SYNDROME [None]
  - TONGUE ULCERATION [None]
  - UPPER RESPIRATORY TRACT INFECTION [None]
